FAERS Safety Report 7945677-9 (Version None)
Quarter: 2011Q4

REPORT INFORMATION
  Report Type: 
  Country: None (occurrence: None)
  Receive Date: 20111129
  Receipt Date: 20111128
  Transmission Date: 20120403
  Serious: Yes (Hospitalization, Other)
  Sender: FDA-Public Use
  Company Number: US-BAYER-2011-114040

PATIENT
  Age: 86 Year
  Sex: Female

DRUGS (2)
  1. ALKA-SELTZER ORIGINAL [Suspect]
     Indication: GASTRIC DISORDER
  2. ASPIRIN [Suspect]
     Indication: GASTRIC DISORDER

REACTIONS (2)
  - GASTRIC HAEMORRHAGE [None]
  - HAEMOPTYSIS [None]
